FAERS Safety Report 13355167 (Version 2)
Quarter: 2020Q2

REPORT INFORMATION
  Report Type: Spontaneous
  Country: US (occurrence: US)
  Receive Date: 20170321
  Receipt Date: 20200406
  Transmission Date: 20200713
  Serious: Yes (Hospitalization, Other)
  Sender: FDA-Public Use
  Company Number: US-009507513-1703USA008893

PATIENT
  Sex: Male
  Weight: 74.83 kg

DRUGS (2)
  1. BYDUREON [Suspect]
     Active Substance: EXENATIDE
     Dosage: 2 MG PER DOSE, 1 X PER WEEK
     Dates: start: 201408, end: 201607
  2. JANUVIA [Suspect]
     Active Substance: SITAGLIPTIN PHOSPHATE
     Dosage: 100 MG, ONCE DAILY
     Route: 048
     Dates: start: 201110, end: 201704

REACTIONS (19)
  - Knee arthroplasty [Unknown]
  - Feeling jittery [Unknown]
  - Osteoarthritis [Unknown]
  - Malignant melanoma [Unknown]
  - Haematuria [Unknown]
  - Cholelithiasis [Unknown]
  - Hepatic lesion [Unknown]
  - Back pain [Unknown]
  - Renal failure [Unknown]
  - Metastases to nervous system [Unknown]
  - Migraine [Unknown]
  - Pancreatic carcinoma metastatic [Unknown]
  - Nephrolithiasis [Recovered/Resolved]
  - Gastrointestinal wall thickening [Unknown]
  - Pollakiuria [Unknown]
  - Basal cell carcinoma [Unknown]
  - Ureterolithiasis [Unknown]
  - Limb discomfort [Unknown]
  - Diverticulum [Unknown]

NARRATIVE: CASE EVENT DATE: 20151229
